FAERS Safety Report 14262538 (Version 5)
Quarter: 2022Q1

REPORT INFORMATION
  Report Type: Spontaneous
  Country: US (occurrence: US)
  Receive Date: 20171208
  Receipt Date: 20220119
  Transmission Date: 20220424
  Serious: No
  Sender: FDA-Public Use
  Company Number: US-PFIZER INC-2017518687

PATIENT
  Age: 63 Year
  Sex: Female

DRUGS (14)
  1. XELJANZ XR [Suspect]
     Active Substance: TOFACITINIB CITRATE
     Indication: Rheumatoid arthritis
     Dosage: 11 MG, DAILY
     Route: 048
     Dates: start: 201706, end: 201709
  2. XELJANZ XR [Suspect]
     Active Substance: TOFACITINIB CITRATE
     Dosage: 11 MG, 1X/DAY (ONCE DAILY)
     Route: 048
     Dates: start: 201709
  3. XELJANZ XR [Suspect]
     Active Substance: TOFACITINIB CITRATE
     Dosage: 11 MG, DAILY
     Route: 048
  4. PREDNISONE [Concomitant]
     Active Substance: PREDNISONE
     Dosage: 3 MG, DAILY
  5. LIPITOR [Concomitant]
     Active Substance: ATORVASTATIN CALCIUM
     Dosage: 20 MG, DAILY
  6. COQ10 [ASCORBIC ACID;BETACAROTENE;CUPRIC OXIDE;MANGANESE SULFATE;SELEN [Concomitant]
     Dosage: 1 DF (300/400 MG), DAILY
  7. TOPROL XL [Concomitant]
     Active Substance: METOPROLOL SUCCINATE
     Dosage: 50 MG, DAILY
  8. DIOVAN HCT [Concomitant]
     Active Substance: HYDROCHLOROTHIAZIDE\VALSARTAN
     Dosage: 0.5 DF, DAILY (320/12H, 1/2 DAILY)
  9. SYNTHROID [Concomitant]
     Active Substance: LEVOTHYROXINE SODIUM
     Dosage: 100 MG, DAILY
  10. OMEPRAZOLE [Concomitant]
     Active Substance: OMEPRAZOLE
     Dosage: 40 MG, DAILY
  11. ASPIRIN [Concomitant]
     Active Substance: ASPIRIN
     Dosage: 81 MG, DAILY
  12. PROZAC [Concomitant]
     Active Substance: FLUOXETINE HYDROCHLORIDE
     Dosage: 20 MG, DAILY
  13. ONDANSETRON [Concomitant]
     Active Substance: ONDANSETRON
     Dosage: 4 MG, AS NEEDED
  14. TRAMADOL [Concomitant]
     Active Substance: TRAMADOL
     Dosage: 50 MG, AS NEEDED

REACTIONS (3)
  - Urinary tract infection [Recovered/Resolved]
  - Headache [Unknown]
  - Product prescribing error [Unknown]

NARRATIVE: CASE EVENT DATE: 20180303
